FAERS Safety Report 9397874 (Version 5)
Quarter: 2013Q4

REPORT INFORMATION
  Report Type: Spontaneous
  Country: US (occurrence: US)
  Receive Date: 20130712
  Receipt Date: 20131028
  Transmission Date: 20140711
  Serious: Yes (Other)
  Sender: FDA-Public Use
  Company Number: PHEH2013US014632

PATIENT
  Sex: Female

DRUGS (7)
  1. TEGRETOL [Suspect]
     Indication: TRIGEMINAL NEURALGIA
     Dosage: UKN
     Dates: start: 1999, end: 2001
  2. TEGRETOL [Suspect]
     Dosage: UNK
  3. LYRICA [Suspect]
     Indication: TRIGEMINAL NEURALGIA
     Dosage: UNK UKN, UNK
  4. NEURONTIN [Suspect]
     Indication: TRIGEMINAL NEURALGIA
     Dosage: 300 MG, TID
     Dates: start: 2005
  5. NEURONTIN [Suspect]
     Dosage: 2400 MG (900 MG IN THE MORNING, 600 MG IN THE AFTERNOON AND 900 MG AT NIGHT), QD
  6. TRAZODONE [Concomitant]
     Indication: INSOMNIA
     Dosage: UNK UKN, UNK
  7. DRUG THERAPY NOS [Concomitant]
     Indication: IMPAIRED GASTRIC EMPTYING
     Dosage: 10 MG, TID

REACTIONS (10)
  - Hepatitis C [Unknown]
  - Drug intolerance [Unknown]
  - Abnormal behaviour [Recovered/Resolved]
  - Visual impairment [Recovered/Resolved]
  - Dysgraphia [Recovered/Resolved]
  - Malaise [Unknown]
  - General physical health deterioration [Recovered/Resolved]
  - Headache [Unknown]
  - Tremor [Recovered/Resolved]
  - Drug withdrawal syndrome [Recovered/Resolved]
